FAERS Safety Report 8996585 (Version 2)
Quarter: 2013Q1

REPORT INFORMATION
  Report Type: Spontaneous
  Country: US (occurrence: US)
  Receive Date: 20130104
  Receipt Date: 20130207
  Transmission Date: 20140127
  Serious: No
  Sender: FDA-Public Use
  Company Number: US-PFIZER INC-2013000074

PATIENT
  Age: 82 Year
  Sex: Male

DRUGS (1)
  1. SUTENT [Suspect]
     Indication: MALIGNANT NEOPLASM OF EYE
     Dosage: 25 MG, 1X/DAY
     Dates: start: 20121023

REACTIONS (3)
  - Off label use [Unknown]
  - Fatigue [Unknown]
  - Pain [Unknown]
